FAERS Safety Report 6567060-3 (Version None)
Quarter: 2010Q1

REPORT INFORMATION
  Report Type: 
  Country: None (occurrence: None)
  Receive Date: 20100127
  Receipt Date: 20100121
  Transmission Date: 20100710
  Serious: Yes (Death, Life-Threatening)
  Sender: FDA-Public Use
  Company Number: 2010SP003635

PATIENT
  Age: 76 Year
  Sex: Male

DRUGS (2)
  1. INTEGRILIN [Suspect]
     Indication: ANTICOAGULANT THERAPY
     Dosage: 21 ML; INBO
     Route: 040
     Dates: start: 20100108, end: 20100108
  2. HEPARIN [Suspect]
     Indication: ANTICOAGULANT THERAPY
     Dosage: 10000 IU; INBO
     Route: 040
     Dates: start: 20100108, end: 20100108

REACTIONS (2)
  - CARDIOGENIC SHOCK [None]
  - CORONARY ARTERY OCCLUSION [None]
